FAERS Safety Report 10375466 (Version 1)
Quarter: 2014Q3

REPORT INFORMATION
  Report Type: Spontaneous
  Country: US (occurrence: US)
  Receive Date: 20140811
  Receipt Date: 20140811
  Transmission Date: 20150326
  Serious: No
  Sender: FDA-Public Use
  Company Number: US-PFIZER INC-2014219549

PATIENT
  Sex: Male

DRUGS (1)
  1. ZITHROMAX [Suspect]
     Active Substance: AZITHROMYCIN DIHYDRATE
     Dosage: UNK
     Dates: end: 20140804

REACTIONS (4)
  - Muscle spasms [Unknown]
  - Myalgia [Unknown]
  - Muscular weakness [Unknown]
  - Muscle disorder [Unknown]

NARRATIVE: CASE EVENT DATE: 201408
